FAERS Safety Report 6410110-5 (Version None)
Quarter: 2009Q4

REPORT INFORMATION
  Report Type: 
  Country: None (occurrence: None)
  Receive Date: 20091022
  Receipt Date: 20091013
  Transmission Date: 20100525
  Serious: Yes (Hospitalization)
  Sender: FDA-Public Use
  Company Number: JP-NOVOPROD-289298

PATIENT
  Age: 69 Year
  Sex: Male
  Weight: 98 kg

DRUGS (6)
  1. MIXTARD HUMAN 70/30 [Suspect]
     Indication: DIABETES MELLITUS
     Dosage: 92 IU, QD
     Route: 058
  2. METOPROLOL TARTRATE [Concomitant]
  3. IMDUR [Concomitant]
  4. TRITACE [Concomitant]
  5. NITROLINGUAL [Concomitant]
  6. LIPEX                              /00848101/ [Concomitant]

REACTIONS (1)
  - PNEUMONIA [None]
